FAERS Safety Report 11553023 (Version 2)
Quarter: 2015Q3

REPORT INFORMATION
  Report Type: Spontaneous
  Country: GR (occurrence: GR)
  Receive Date: 20150925
  Receipt Date: 20150925
  Transmission Date: 20151125
  Serious: Yes (Hospitalization, Other)
  Sender: FDA-Public Use
  Company Number: GR-WATSON-2015-20028

PATIENT
  Age: 75 Year
  Sex: Male

DRUGS (4)
  1. QUETIAPINE (UNKNOWN) [Interacting]
     Active Substance: QUETIAPINE
     Indication: INSOMNIA
     Dosage: 125 MG, DAILY
     Route: 065
  2. CLARITHROMYCIN (UNKNOWN) [Interacting]
     Active Substance: CLARITHROMYCIN
     Indication: PYREXIA
  3. CLARITHROMYCIN (UNKNOWN) [Suspect]
     Active Substance: CLARITHROMYCIN
     Indication: INTENTIONAL PRODUCT MISUSE
     Dosage: 1000 MG, DAILY
     Route: 065
  4. QUETIAPINE (UNKNOWN) [Interacting]
     Active Substance: QUETIAPINE
     Indication: ABNORMAL BEHAVIOUR

REACTIONS (3)
  - Neuroleptic malignant syndrome [Recovered/Resolved]
  - Drug interaction [Recovered/Resolved]
  - Intentional product misuse [Unknown]
